FAERS Safety Report 20917606 (Version 1)
Quarter: 2022Q2

REPORT INFORMATION
  Report Type: Report from Study
  Country: IE (occurrence: None)
  Receive Date: 20220606
  Receipt Date: 20220606
  Transmission Date: 20220721
  Serious: Yes (Hospitalization)
  Sender: FDA-Public Use
  Company Number: IE-Merck Healthcare KGaA-9326746

PATIENT
  Age: 16 Year
  Sex: Male

DRUGS (10)
  1. SAIZEN [Suspect]
     Active Substance: SOMATROPIN
     Indication: Growth hormone deficiency
     Dosage: OFF THERAPY REASON WAS DUE TO INCREASED THERAPY INITIATED
     Route: 058
     Dates: start: 20110117, end: 20110314
  2. SAIZEN [Suspect]
     Active Substance: SOMATROPIN
     Dosage: OFF THERAPY REASON WAS DUE TO INCREASED THERAPY INITIATED
     Route: 058
     Dates: start: 20110519, end: 20111006
  3. SAIZEN [Suspect]
     Active Substance: SOMATROPIN
     Dosage: 6MG LIQUID CARTRIDGE
     Route: 058
     Dates: start: 20161008, end: 20161013
  4. SAIZEN [Suspect]
     Active Substance: SOMATROPIN
     Dosage: 20 MG LIQUID CARTRIDGE
     Route: 058
     Dates: start: 20141126, end: 20161008
  5. SAIZEN [Suspect]
     Active Substance: SOMATROPIN
     Dosage: 20 MG LIQUID CARTRIDGE: OFF THERAPY REASON: INCREASED THERAPY INITIATED
     Route: 058
     Dates: start: 20161014, end: 20171219
  6. SAIZEN [Suspect]
     Active Substance: SOMATROPIN
     Dosage: 12 MG LIQUID CARTRIDGE?OFF THERAPY REASON WAS DUE TO INCREASED THERAPY INITIATED
     Route: 058
     Dates: start: 20120501, end: 20141126
  7. SAIZEN [Suspect]
     Active Substance: SOMATROPIN
     Dosage: OFF THERAPY REASON WAS DUE TO CHANGED TO LIQUID: 0.5 (UNIT UNSPECIFIED)
     Route: 058
     Dates: start: 20111006, end: 20120501
  8. SAIZEN [Suspect]
     Active Substance: SOMATROPIN
     Dosage: OFF THERAPY REASON WAS DUE TO INCREASED THERAPY INITIATED
     Route: 058
     Dates: start: 20110315, end: 20110519
  9. SAIZEN [Suspect]
     Active Substance: SOMATROPIN
     Route: 058
     Dates: start: 20150702
  10. SAIZEN [Suspect]
     Active Substance: SOMATROPIN
     Dosage: SAIZEN LIQUID 20MG (8MG/ML)
     Route: 058
     Dates: start: 20171219

REACTIONS (1)
  - Appendicectomy [Recovering/Resolving]

NARRATIVE: CASE EVENT DATE: 20220523
